FAERS Safety Report 6572062-7 (Version None)
Quarter: 2010Q1

REPORT INFORMATION
  Report Type: 
  Country: None (occurrence: None)
  Receive Date: 20100205
  Receipt Date: 20100125
  Transmission Date: 20100710
  Serious: Yes (Death)
  Sender: FDA-Public Use
  Company Number: US-WATSON-2010-00896

PATIENT
  Age: 65 Year
  Sex: Female

DRUGS (4)
  1. PREDNISONE [Suspect]
     Indication: POLYMYOSITIS
     Dosage: UNK
     Dates: start: 19900101
  2. METHOTREXATE [Suspect]
     Indication: POLYMYOSITIS
  3. AZATHIOPRINE [Suspect]
     Indication: POLYMYOSITIS
  4. CYCLOPHOSPHAMIDE [Suspect]
     Indication: POLYMYOSITIS
     Dosage: UNK

REACTIONS (2)
  - CENTRAL NERVOUS SYSTEM LYMPHOMA [None]
  - EPSTEIN-BARR VIRUS INFECTION [None]
